FAERS Safety Report 9253006 (Version 1)
Quarter: 2013Q2

REPORT INFORMATION
  Report Type: Spontaneous
  Country: US (occurrence: US)
  Receive Date: 20130424
  Receipt Date: 20130424
  Transmission Date: 20140414
  Serious: No
  Sender: FDA-Public Use
  Company Number: US-TEVA-400695USA

PATIENT
  Age: 32 Year
  Sex: Female
  Weight: 59.02 kg

DRUGS (3)
  1. PLAN B ONE-STEP [Suspect]
     Indication: POST COITAL CONTRACEPTION
     Dosage: 1.5 MILLIGRAM DAILY;
     Route: 048
     Dates: start: 20130411, end: 20130411
  2. GREEN COFFEE BEAN DIET PILL [Concomitant]
     Indication: MEDICAL DIET
  3. LOESTRIN FE 24 [Concomitant]
     Indication: CONTRACEPTION

REACTIONS (1)
  - Pollakiuria [Not Recovered/Not Resolved]
